FAERS Safety Report 13741423 (Version 1)
Quarter: 2017Q3

REPORT INFORMATION
  Report Type: Spontaneous
  Country: US (occurrence: US)
  Receive Date: 20170711
  Receipt Date: 20170711
  Transmission Date: 20171127
  Serious: Yes (Hospitalization, Disabling, Other)
  Sender: FDA-Public Use
  Company Number: None

PATIENT
  Age: 62 Year
  Sex: Male
  Weight: 113.5 kg

DRUGS (12)
  1. PROSTHETIC RT FOOT [Concomitant]
  2. NOVOLOG MIX 70/30 [Suspect]
     Active Substance: INSULIN ASPART
     Indication: GLUCOSE TOLERANCE IMPAIRED
     Dosage: NEEDLE IN STOMACH TWICE DAILY
     Dates: start: 20000201, end: 20130620
  3. LISINOPRIL. [Concomitant]
     Active Substance: LISINOPRIL
  4. PROSTATA [Concomitant]
  5. VITAMIN D [Concomitant]
     Active Substance: CHOLECALCIFEROL
  6. ASPIRIN 81 [Concomitant]
     Active Substance: ASPIRIN
  7. LEVEMERE [Concomitant]
  8. NOVOLOG MIX 70/30 [Suspect]
     Active Substance: INSULIN ASPART
     Indication: WEIGHT INCREASED
     Dosage: NEEDLE IN STOMACH TWICE DAILY
     Dates: start: 20000201, end: 20130620
  9. STIOLTO-RESPIMAT [Concomitant]
  10. MONTELUKAST [Concomitant]
     Active Substance: MONTELUKAST SODIUM
  11. COENZYME Q10 [Concomitant]
     Active Substance: UBIDECARENONE
  12. MULTIVITAMIN [Concomitant]
     Active Substance: VITAMINS

REACTIONS (5)
  - Glaucoma [None]
  - Weight increased [None]
  - Quality of life decreased [None]
  - Insulin resistance [None]
  - Foot amputation [None]

NARRATIVE: CASE EVENT DATE: 20010101
